FAERS Safety Report 25667879 (Version 1)
Quarter: 2025Q3

REPORT INFORMATION
  Report Type: Spontaneous
  Country: CN (occurrence: CN)
  Receive Date: 20250812
  Receipt Date: 20250812
  Transmission Date: 20251020
  Serious: Yes (Hospitalization, Other)
  Sender: BAXTER
  Company Number: None

PATIENT
  Age: 62 Year
  Sex: Female
  Weight: 59 kg

DRUGS (6)
  1. CYCLOPHOSPHAMIDE [Suspect]
     Active Substance: CYCLOPHOSPHAMIDE
     Indication: T-cell lymphoma
     Dosage: 0.8 G, EVERY 2 WK
     Route: 041
     Dates: start: 20250707, end: 20250721
  2. SODIUM CHLORIDE [Suspect]
     Active Substance: SODIUM CHLORIDE
     Dosage: 100 ML, EVERY 2 WK, 0.9% INJECTION WITH CYCLOPHOSPHAMIDE (ONCE A DAY)
     Route: 041
     Dates: start: 20250707, end: 20250721
  3. SODIUM CHLORIDE [Suspect]
     Active Substance: SODIUM CHLORIDE
     Dosage: 250 ML, 1X A WEEK, 0.9% INJECTION, WITH DAUNORUBICIN
     Route: 041
     Dates: start: 20250707, end: 20250728
  4. SODIUM CHLORIDE [Suspect]
     Active Substance: SODIUM CHLORIDE
     Dosage: 20 ML, 1X A WEEK, INJECTION WITH VINDESINE SULFATE
     Route: 042
     Dates: start: 20250707, end: 20250728
  5. DAUNORUBICIN HYDROCHLORIDE [Suspect]
     Active Substance: DAUNORUBICIN HYDROCHLORIDE
     Indication: T-cell lymphoma
     Dosage: 40 MG, 1X A WEEK
     Route: 041
     Dates: start: 20250707, end: 20250728
  6. VINDESINE SULFATE [Suspect]
     Active Substance: VINDESINE SULFATE
     Indication: T-cell lymphoma
     Dosage: 4MG, 1X A WEEK, ROUTE: INTRAVENOUS INJECTION
     Route: 042
     Dates: start: 20250707, end: 20250728

REACTIONS (2)
  - Hyperpyrexia [Recovering/Resolving]
  - Myelosuppression [Recovering/Resolving]

NARRATIVE: CASE EVENT DATE: 20250725
